FAERS Safety Report 8023900-2 (Version None)
Quarter: 2012Q1

REPORT INFORMATION
  Report Type: 
  Country: None (occurrence: None)
  Receive Date: 20120105
  Receipt Date: 20111228
  Transmission Date: 20120608
  Serious: Yes (Hospitalization, Other)
  Sender: FDA-Public Use
  Company Number: US-BAYER-2011-095441

PATIENT
  Age: 40 Year
  Sex: Female
  Weight: 83.9 kg

DRUGS (8)
  1. OXYCODONE HCL AND ACETAMINOPHEN [Concomitant]
  2. MORPHINE [Concomitant]
  3. YASMIN [Suspect]
     Dosage: UNK
     Dates: start: 20090301, end: 20090801
  4. TIGAN [Concomitant]
  5. PREVACID [Concomitant]
     Dosage: 30 MG, UNK
  6. CYMBALTA [Concomitant]
     Dosage: 20 MG, UNK
  7. ZYPREXA [Concomitant]
     Dosage: 2.5 MG, UNK
  8. YASMIN [Suspect]
     Indication: CONTRACEPTION
     Dosage: UNK
     Dates: start: 20060101, end: 20071001

REACTIONS (2)
  - CHOLECYSTITIS CHRONIC [None]
  - GALLBLADDER INJURY [None]
